FAERS Safety Report 11745658 (Version 3)
Quarter: 2016Q1

REPORT INFORMATION
  Report Type: Report from Study
  Country: US (occurrence: US)
  Receive Date: 20151117
  Receipt Date: 20160119
  Transmission Date: 20160525
  Serious: No
  Sender: FDA-Public Use
  Company Number: PHEH2015US023846

PATIENT
  Age: 22 Year
  Sex: Female

DRUGS (1)
  1. GILENYA [Suspect]
     Active Substance: FINGOLIMOD HYDROCHLORIDE
     Indication: MULTIPLE SCLEROSIS
     Dosage: 0.5 MG, QD
     Route: 048
     Dates: start: 20151028

REACTIONS (6)
  - Nausea [Recovered/Resolved]
  - Diarrhoea [Recovered/Resolved]
  - Memory impairment [Recovered/Resolved]
  - Rhinorrhoea [Recovered/Resolved]
  - Headache [Recovered/Resolved]
  - Sneezing [Unknown]

NARRATIVE: CASE EVENT DATE: 20151114
